FAERS Safety Report 5925657-5 (Version None)
Quarter: 2008Q4

REPORT INFORMATION
  Report Type: 
  Country: None (occurrence: None)
  Receive Date: 20081016
  Receipt Date: 20081003
  Transmission Date: 20090506
  Serious: Yes (Hospitalization, Other)
  Sender: FDA-Public Use
  Company Number: GXKR2008DK09620

PATIENT
  Age: 53 Year
  Sex: Female

DRUGS (10)
  1. SIMVASTATIN [Suspect]
     Indication: HYPERCHOLESTEROLAEMIA
     Dosage: 10 MG, DAILY, ORAL
     Route: 048
     Dates: start: 20030101, end: 20060101
  2. ZARATOR ^PFIZER^ (ATORVASTATIN) FILM-COATED TABLET [Suspect]
     Indication: HYPERCHOLESTEROLAEMIA
     Dosage: 40 MG, DAILY, ORAL
     Route: 048
     Dates: start: 20060913, end: 20080724
  3. NOVOMIX 30 (INSULIN ASPART, PROTAMINE INSULIN ASPART) [Concomitant]
  4. ORABET (METFORMIN HYDROCHLORIDE) FILM-COATED TABLET [Concomitant]
  5. KALEROID (POTASSIUM CHLORIDE) [Concomitant]
  6. PLAVIX [Concomitant]
  7. FUROSEMIDE [Concomitant]
  8. SELO-ZOK (METOPROLOL SUCCINATE) EXTENDED RELEASE TABLET [Concomitant]
  9. DIOVAN [Concomitant]
  10. NORVASC /DEN/ (AMLODIPINE BESILATE) TABLET [Concomitant]

REACTIONS (17)
  - AMNESIA [None]
  - ANXIETY [None]
  - ARTHRALGIA [None]
  - CONFUSIONAL STATE [None]
  - DISTURBANCE IN ATTENTION [None]
  - HEADACHE [None]
  - HYPERTENSION [None]
  - MALAISE [None]
  - MENTAL DISORDER [None]
  - MUSCULOSKELETAL STIFFNESS [None]
  - MYALGIA [None]
  - NIGHTMARE [None]
  - PNEUMONIA [None]
  - RESPIRATORY TRACT INFECTION [None]
  - SKIN DISORDER [None]
  - TREMOR [None]
  - VERTIGO [None]
